FAERS Safety Report 6764351-8 (Version None)
Quarter: 2010Q2

REPORT INFORMATION
  Report Type: 
  Country: None (occurrence: None)
  Receive Date: 20100610
  Receipt Date: 20100601
  Transmission Date: 20101027
  Serious: Yes (Other)
  Sender: FDA-Public Use
  Company Number: CN-PFIZER INC-2010064543

PATIENT
  Age: 45 Year
  Sex: Male

DRUGS (3)
  1. DIFLUCAN [Suspect]
     Indication: LUNG INFECTION
     Dosage: 400 MG, 1X/DAY
     Route: 042
     Dates: start: 20100516, end: 20100530
  2. HEPARIN [Suspect]
  3. IMIPENEM AND CILASTATIN [Concomitant]

REACTIONS (1)
  - HAEMORRHAGE [None]
